FAERS Safety Report 5375181-6 (Version None)
Quarter: 2007Q2

REPORT INFORMATION
  Report Type: 
  Country: None (occurrence: None)
  Receive Date: 20070629
  Receipt Date: 20070614
  Transmission Date: 20071010
  Serious: Yes (Death, Hospitalization)
  Sender: FDA-Public Use
  Company Number: IT-GENENTECH-243555

PATIENT
  Sex: Female

DRUGS (8)
  1. BEVACIZUMAB [Suspect]
     Indication: COLORECTAL CANCER
     Dosage: 380 MG, Q2W
     Route: 042
     Dates: start: 20070410, end: 20070501
  2. CAPECITABINE [Suspect]
     Indication: COLORECTAL CANCER
     Dosage: 3500 MG, UNK
     Route: 048
     Dates: start: 20070410, end: 20070501
  3. OXALIPLATIN [Suspect]
     Indication: COLORECTAL CANCER
     Dosage: 70 MG, 1/WEEK
     Route: 042
     Dates: start: 20070401, end: 20070501
  4. LANSOPRAZOLE [Concomitant]
     Indication: DRUG USE FOR UNKNOWN INDICATION
     Dates: start: 20070418
  5. PREDNISONE TAB [Concomitant]
     Indication: DRUG USE FOR UNKNOWN INDICATION
     Dates: start: 20070408
  6. PLASIL [Concomitant]
     Indication: DRUG USE FOR UNKNOWN INDICATION
     Dates: start: 20070418
  7. NEORECORMON [Concomitant]
     Indication: DRUG USE FOR UNKNOWN INDICATION
     Dates: start: 20070412
  8. BARNIDIPINE HYDROCHLORIDE [Concomitant]
     Indication: DRUG USE FOR UNKNOWN INDICATION

REACTIONS (1)
  - INTESTINAL OBSTRUCTION [None]
